FAERS Safety Report 7153341-1 (Version None)
Quarter: 2010Q4

REPORT INFORMATION
  Report Type: 
  Country: None (occurrence: None)
  Receive Date: 20101213
  Receipt Date: 20101206
  Transmission Date: 20110411
  Serious: Yes (Other)
  Sender: FDA-Public Use
  Company Number: B0688653A

PATIENT
  Age: 74 Year

DRUGS (1)
  1. ALLI [Suspect]
     Route: 065
     Dates: start: 20070101, end: 20100101

REACTIONS (1)
  - COLON CANCER [None]
